FAERS Safety Report 8439995-8 (Version None)
Quarter: 2012Q2

REPORT INFORMATION
  Report Type: 
  Country: None (occurrence: None)
  Receive Date: 20120615
  Receipt Date: 20120612
  Transmission Date: 20120825
  Serious: Yes (Hospitalization)
  Sender: FDA-Public Use
  Company Number: ES-PFIZER INC-2012111525

PATIENT
  Age: 57 Year
  Sex: Male

DRUGS (6)
  1. OMEPRAZOLE [Concomitant]
     Indication: PROPHYLAXIS
     Dosage: 40 MG, 1X/DAY
     Route: 048
  2. LIORESAL [Concomitant]
     Indication: DELIRIUM TREMENS
     Dosage: 15 MG, 1X/DAY
     Route: 048
     Dates: start: 20111118, end: 20111126
  3. NOROXIN [Concomitant]
     Dosage: 400 MG, 1X/DAY
     Route: 048
     Dates: start: 20100629
  4. FUROSEMIDE [Interacting]
     Indication: ASCITES
     Dosage: 40 MG, 1X/DAY
     Route: 048
     Dates: start: 20080801, end: 20111125
  5. ALDACTONE [Suspect]
     Indication: ASCITES
     Dosage: 100 MG, 1X/DAY
     Route: 048
     Dates: start: 20111118, end: 20111125
  6. PROPRANOLOL HYDROCHLORIDE [Concomitant]
     Indication: VARICES OESOPHAGEAL
     Dosage: 20 MG, 1X/DAY
     Route: 048
     Dates: start: 20080801

REACTIONS (2)
  - ENCEPHALOPATHY [None]
  - DRUG INTERACTION [None]
